FAERS Safety Report 18889821 (Version 2)
Quarter: 2021Q1

REPORT INFORMATION
  Report Type: Report from Study
  Country: DE (occurrence: DE)
  Receive Date: 20210213
  Receipt Date: 20210312
  Transmission Date: 20210420
  Serious: Yes (Hospitalization, Other)
  Sender: FDA-Public Use
  Company Number: NVSC2021DE030355

PATIENT
  Sex: Female
  Weight: 49 kg

DRUGS (3)
  1. KISQALI [Suspect]
     Active Substance: RIBOCICLIB
     Indication: BREAST CANCER METASTATIC
     Dosage: 600 MG, QD
     Route: 048
     Dates: start: 20191107, end: 20200129
  2. LETROZOLE. [Suspect]
     Active Substance: LETROZOLE
     Indication: BREAST CANCER METASTATIC
     Dosage: 2.5 MG, QD
     Route: 048
     Dates: start: 20191107
  3. KISQALI [Suspect]
     Active Substance: RIBOCICLIB
     Dosage: 400 MG, QD
     Route: 048
     Dates: start: 20200130

REACTIONS (5)
  - Mallory-Weiss syndrome [Unknown]
  - Rectal haemorrhage [Recovered/Resolved]
  - Angiodysplasia [Recovered/Resolved]
  - Rectal fissure [Unknown]
  - Anal fissure [Unknown]

NARRATIVE: CASE EVENT DATE: 20201030
